FAERS Safety Report 7327639-8 (Version None)
Quarter: 2011Q1

REPORT INFORMATION
  Report Type: 
  Country: None (occurrence: None)
  Receive Date: 20110303
  Receipt Date: 20110221
  Transmission Date: 20110831
  Serious: Yes (Death, Other)
  Sender: FDA-Public Use
  Company Number: BE-CELGENEUS-013-21880-11021741

PATIENT
  Sex: Female

DRUGS (10)
  1. REVLIMID [Suspect]
     Indication: MULTIPLE MYELOMA
     Dosage: 10 MILLIGRAM
     Route: 048
     Dates: start: 20090219
  2. LITICAN [Concomitant]
     Route: 065
  3. MS DIRECT [Concomitant]
     Route: 065
  4. REVLIMID [Suspect]
     Dosage: 10 MILLIGRAM
     Route: 048
     Dates: start: 20090312, end: 20091201
  5. OMEPRAZOLE [Concomitant]
     Route: 065
  6. FORLAX [Concomitant]
     Route: 065
  7. ACICLOVIR [Concomitant]
     Route: 065
  8. ARANESP [Concomitant]
     Route: 065
  9. NEUPOGEN [Concomitant]
     Route: 065
  10. REDOMEX [Concomitant]
     Route: 065

REACTIONS (1)
  - NEUROENDOCRINE CARCINOMA [None]
